FAERS Safety Report 6695898-0 (Version None)
Quarter: 2010Q2

REPORT INFORMATION
  Report Type: 
  Country: None (occurrence: None)
  Receive Date: 20100426
  Receipt Date: 20090811
  Transmission Date: 20101027
  Serious: No
  Sender: FDA-Public Use
  Company Number: A0801649A

PATIENT
  Age: 37 Year
  Sex: Female

DRUGS (11)
  1. ZOFRAN [Suspect]
     Indication: NAUSEA
     Dosage: 1TAB AS REQUIRED
     Route: 048
     Dates: start: 20080101
  2. ZOFRAN [Suspect]
     Dosage: 1TAB AS REQUIRED
     Route: 048
     Dates: start: 20090301, end: 20090301
  3. PROTONIX [Concomitant]
  4. CLARITIN [Concomitant]
  5. MOBIC [Concomitant]
  6. DOXEPIN HCL [Concomitant]
  7. ATARAX [Concomitant]
  8. TRIAMTERENE AND HYDROCHLOROTHIAZIDE [Concomitant]
  9. PHENERGAN [Concomitant]
  10. PERCOCET [Concomitant]
  11. HUMIRA [Concomitant]

REACTIONS (2)
  - DRUG INEFFECTIVE [None]
  - NAUSEA [None]
